FAERS Safety Report 7294383-5 (Version None)
Quarter: 2011Q1

REPORT INFORMATION
  Report Type: 
  Country: None (occurrence: None)
  Receive Date: 20110215
  Receipt Date: 20110208
  Transmission Date: 20110831
  Serious: Yes (Other)
  Sender: FDA-Public Use
  Company Number: US-AMGEN-USASP2011004542

PATIENT
  Age: 48 Year
  Sex: Female

DRUGS (3)
  1. ENBREL [Suspect]
     Indication: RHEUMATOID ARTHRITIS
     Dosage: 50 MG, QWK
     Route: 058
     Dates: start: 20100801
  2. METHOTREXATE [Concomitant]
  3. MOTRIN [Concomitant]

REACTIONS (6)
  - LEUKOPENIA [None]
  - ANTIPHOSPHOLIPID ANTIBODIES POSITIVE [None]
  - PAIN [None]
  - RENAL FUNCTION TEST ABNORMAL [None]
  - RENAL FAILURE [None]
  - DRUG INEFFECTIVE [None]
